FAERS Safety Report 8717470 (Version 2)
Quarter: 2012Q4

REPORT INFORMATION
  Report Type: 
  Country: US (occurrence: US)
  Receive Date: 20120810
  Receipt Date: 20121019
  Transmission Date: 20130627
  Serious: Yes (Hospitalization)
  Sender: FDA-Public Use
  Company Number: US-BAYER-2012-078647

PATIENT
  Age: 43 Year
  Sex: Female
  Weight: 82.65 kg

DRUGS (10)
  1. OCELLA [Suspect]
  2. LIPITOR [Concomitant]
     Dosage: 10 mg, HS
     Dates: start: 20080902, end: 20111130
  3. METFORMIN [Concomitant]
     Dosage: 1000 mg, daily
     Dates: start: 20080902, end: 20110927
  4. LISINOPRIL [Concomitant]
     Dosage: 10 mg, daily
     Dates: start: 20081024, end: 20120709
  5. ZOLPIDEM TARTRATE [Concomitant]
     Dosage: 10 mg, HS
     Dates: start: 20081205, end: 20120619
  6. METOCLOPRAMIDE [Concomitant]
     Dosage: 10 mg/ac, HS
     Dates: start: 20081218, end: 20120607
  7. LANTUS [Concomitant]
     Dosage: 10 u, HS
     Dates: start: 20090120, end: 20120626
  8. GLIMEPIRIDE [Concomitant]
     Dosage: 4 mg, daily
     Dates: start: 20091013, end: 20120709
  9. CLONIDINE [Concomitant]
     Indication: ANXIETY
     Dosage: 0.1 mg, PRN
     Dates: start: 20091128, end: 20101213
  10. ALPRAZOLAM [Concomitant]
     Dosage: 0.5 mg, UNK
     Dates: start: 20100813, end: 20110926

REACTIONS (2)
  - Deep vein thrombosis [None]
  - Thrombophlebitis superficial [None]
